FAERS Safety Report 17585939 (Version 6)
Quarter: 2020Q3

REPORT INFORMATION
  Report Type: Spontaneous
  Country: JP (occurrence: JP)
  Receive Date: 20200326
  Receipt Date: 20200901
  Transmission Date: 20201102
  Serious: Yes (Life-Threatening, Hospitalization)
  Sender: FDA-Public Use
  Company Number: JP-JNJFOC-20200329470

PATIENT
  Age: 75 Year
  Sex: Male
  Weight: 64.5 kg

DRUGS (4)
  1. TREMFYA [Suspect]
     Active Substance: GUSELKUMAB
     Indication: PSORIASIS
     Dosage: EVERY 4?8 WEEKS. LAST DOSE? 30?JAN?2020
     Route: 058
     Dates: start: 20190109, end: 20200130
  2. BENIDIPINE HYDROCHLORIDE [Concomitant]
     Active Substance: BENIDIPINE HYDROCHLORIDE
     Indication: HYPERTENSION
     Route: 048
     Dates: start: 20200302, end: 20200314
  3. LANDEL [Concomitant]
     Active Substance: UNSPECIFIED INGREDIENT
     Indication: HYPERTENSION
     Route: 048
     Dates: start: 20200225, end: 20200302
  4. TREMFYA [Suspect]
     Active Substance: GUSELKUMAB

REACTIONS (2)
  - Interstitial lung disease [Recovering/Resolving]
  - Respiratory syncytial virus infection [Recovered/Resolved]

NARRATIVE: CASE EVENT DATE: 20200222
